FAERS Safety Report 16786949 (Version 1)
Quarter: 2019Q3

REPORT INFORMATION
  Report Type: Spontaneous
  Country: US (occurrence: US)
  Receive Date: 20190909
  Receipt Date: 20190909
  Transmission Date: 20191005
  Serious: No
  Sender: FDA-Public Use
  Company Number: US-SA-2016SA094840

PATIENT
  Age: 81 Year
  Sex: Female
  Weight: 102 kg

DRUGS (2)
  1. LANTUS SOLOSTAR [Suspect]
     Active Substance: INSULIN GLARGINE
     Indication: TYPE 2 DIABETES MELLITUS
     Dosage: 26 UNITS AM AND 48 UNITS PM
     Route: 065
     Dates: start: 2014
  2. LANTUS SOLOSTAR [Suspect]
     Active Substance: INSULIN GLARGINE
     Dosage: 50UNITS IN MORNING AND NIGHT
     Route: 065

REACTIONS (5)
  - Wrong technique in device usage process [Unknown]
  - Blood glucose increased [Unknown]
  - Inappropriate schedule of product administration [Unknown]
  - Injection site haemorrhage [Unknown]
  - Device operational issue [Unknown]

NARRATIVE: CASE EVENT DATE: 2014
